FAERS Safety Report 5422891-8 (Version None)
Quarter: 2007Q3

REPORT INFORMATION
  Report Type: 
  Country: None (occurrence: None)
  Receive Date: 20070820
  Receipt Date: 20070806
  Transmission Date: 20080115
  Serious: Yes (Death)
  Sender: FDA-Public Use
  Company Number: CLOF-10379

PATIENT
  Age: 15 Year
  Sex: Female

DRUGS (25)
  1. CLOFARABINE. MFR. GENZYME [Suspect]
     Indication: ACUTE LYMPHOCYTIC LEUKAEMIA
     Dates: start: 20061024, end: 20061028
  2. LIQUID PARAFFIN [Concomitant]
  3. ZOPICLONE [Concomitant]
  4. FENTANYL [Concomitant]
  5. HYOSCINE HYDROCHLORIDE [Concomitant]
  6. MIDAZOLAM HCL [Concomitant]
  7. MAGNESIUM SULFATE [Concomitant]
  8. GABAPENTIN [Concomitant]
  9. LEVOMEPROMAZINE [Concomitant]
  10. MOVICOL [Concomitant]
  11. ALFENTANIL [Concomitant]
  12. DEXAMETHASONE [Concomitant]
  13. ACYCLOVIR [Concomitant]
  14. TAZOCIN [Concomitant]
  15. GENTAMICIN [Concomitant]
  16. HYOSCINE [Concomitant]
  17. PARACETAMOL [Concomitant]
  18. POTASSIUM CHLORIDE [Concomitant]
  19. PIPERACILLIN [Concomitant]
  20. NORADRENALINE [Concomitant]
  21. NALOXONE [Concomitant]
  22. LANSOPRAZOLE [Concomitant]
  23. SUCRALFATE [Concomitant]
  24. RANITIDINE [Concomitant]
  25. NORETHINDRONE [Concomitant]

REACTIONS (10)
  - ABDOMINAL PAIN [None]
  - BACK PAIN [None]
  - BONE MARROW FAILURE [None]
  - DEPRESSED LEVEL OF CONSCIOUSNESS [None]
  - HAEMATEMESIS [None]
  - HYPOTENSION [None]
  - NEUTROPENIC SEPSIS [None]
  - PERIPHERAL CIRCULATORY FAILURE [None]
  - RENAL FAILURE [None]
  - TACHYCARDIA [None]
